FAERS Safety Report 19674946 (Version 1)
Quarter: 2021Q3

REPORT INFORMATION
  Report Type: Spontaneous
  Country: US (occurrence: US)
  Receive Date: 20210809
  Receipt Date: 20210809
  Transmission Date: 20211014
  Serious: Yes (Hospitalization)
  Sender: FDA-Public Use
  Company Number: None

PATIENT
  Age: 24 Year
  Sex: Female
  Weight: 108 kg

DRUGS (3)
  1. HYDROXYZINE [Concomitant]
     Active Substance: HYDROXYZINE HYDROCHLORIDE
     Dates: start: 20210708
  2. LATUDA [Suspect]
     Active Substance: LURASIDONE HYDROCHLORIDE
     Indication: BIPOLAR DISORDER
     Route: 048
     Dates: start: 20210610, end: 20210711
  3. LAMICTAL [Concomitant]
     Active Substance: LAMOTRIGINE
     Dates: start: 20200923, end: 20210718

REACTIONS (8)
  - Rash [None]
  - Liver function test increased [None]
  - Contusion [None]
  - Faeces pale [None]
  - Anxiety [None]
  - Prothrombin level increased [None]
  - Pruritus [None]
  - Blood bilirubin increased [None]

NARRATIVE: CASE EVENT DATE: 20210714
